FAERS Safety Report 7952065-8 (Version None)
Quarter: 2011Q4

REPORT INFORMATION
  Report Type: 
  Country: None (occurrence: None)
  Receive Date: 20111201
  Receipt Date: 20111123
  Transmission Date: 20120403
  Serious: Yes (Hospitalization)
  Sender: FDA-Public Use
  Company Number: US-ELI_LILLY_AND_COMPANY-US201111008248

PATIENT
  Age: 65 Year
  Sex: Female

DRUGS (1)
  1. EFFIENT [Suspect]
     Dosage: UNK

REACTIONS (1)
  - ARTERIAL THROMBOSIS [None]
